FAERS Safety Report 5114942-5 (Version None)
Quarter: 2006Q3

REPORT INFORMATION
  Report Type: 
  Country: None (occurrence: None)
  Receive Date: 20060925
  Receipt Date: 20060925
  Transmission Date: 20061208
  Serious: Yes (Disabling, Other)
  Sender: FDA-Public Use
  Company Number: None

PATIENT
  Age: 48 Year
  Sex: Male
  Weight: 61.2356 kg

DRUGS (2)
  1. ACTIQ 600 MCG CEPHALON [Suspect]
     Indication: BREAKTHROUGH PAIN
     Dosage: 600 MCG    4 TIMES PER DAY   PO
     Route: 048
     Dates: start: 20000915, end: 20060529
  2. ACTIQ 600 MCG CEPHALON [Suspect]
     Indication: PAIN
     Dosage: 600 MCG    4 TIMES PER DAY   PO
     Route: 048
     Dates: start: 20000915, end: 20060529

REACTIONS (7)
  - DENTAL CARIES [None]
  - DRUG DEPENDENCE [None]
  - DYSPNOEA [None]
  - PAIN [None]
  - TOOTH LOSS [None]
  - UNEVALUABLE EVENT [None]
  - WEIGHT INCREASED [None]
